FAERS Safety Report 17954310 (Version 2)
Quarter: 2020Q3

REPORT INFORMATION
  Report Type: Report from Study
  Country: US (occurrence: US)
  Receive Date: 20200629
  Receipt Date: 20200717
  Transmission Date: 20201103
  Serious: Yes (Other)
  Sender: FDA-Public Use
  Company Number: US-BIOGEN-2020BI00890391

PATIENT
  Age: 35 Year
  Sex: Female

DRUGS (1)
  1. TYSABRI [Suspect]
     Active Substance: NATALIZUMAB
     Indication: MULTIPLE SCLEROSIS
     Route: 042
     Dates: start: 20131210, end: 20140828

REACTIONS (3)
  - Hypertension [Recovered/Resolved]
  - Maternal exposure during pregnancy [Recovered/Resolved]
  - Cervix dystocia [Recovered/Resolved]

NARRATIVE: CASE EVENT DATE: 2014
